FAERS Safety Report 25032413 (Version 2)
Quarter: 2025Q1

REPORT INFORMATION
  Report Type: Spontaneous
  Country: IT (occurrence: IT)
  Receive Date: 20250303
  Receipt Date: 20250320
  Transmission Date: 20250409
  Serious: Yes (Life-Threatening, Hospitalization, Other)
  Sender: TEVA
  Company Number: None

PATIENT
  Age: 46 Year
  Sex: Female

DRUGS (3)
  1. LORAZEPAM [Suspect]
     Active Substance: LORAZEPAM
     Indication: Product used for unknown indication
     Dosage: THE PATIENT TOOK 36 1 MG TABLETS (TOTAL 36 MG)
     Route: 048
     Dates: start: 20220430, end: 20220430
  2. DISULFIRAM [Suspect]
     Active Substance: DISULFIRAM
     Indication: Product used for unknown indication
     Dosage: THE PATIENT TOOK 30 ETHYLTOX TABLETS OF 200 MG (6 G)
     Route: 048
     Dates: start: 20220430, end: 20220430
  3. TACHIPIRINA [Suspect]
     Active Substance: ACETAMINOPHEN
     Indication: Product used for unknown indication
     Dosage: THE PATIENT TOOK 16 1 G TACHIPIRINA TABLETS (TOTAL 16 G)
     Route: 048
     Dates: start: 20220430, end: 20220430

REACTIONS (5)
  - Intentional self-injury [Recovered/Resolved]
  - Vomiting [Not Recovered/Not Resolved]
  - Respiratory alkalosis [Recovered/Resolved]
  - Drug abuse [Recovered/Resolved]
  - Psychomotor hyperactivity [Recovered/Resolved]

NARRATIVE: CASE EVENT DATE: 20220430
